FAERS Safety Report 11326051 (Version 7)
Quarter: 2016Q1

REPORT INFORMATION
  Report Type: Report from Study
  Country: US (occurrence: US)
  Receive Date: 20150731
  Receipt Date: 20160323
  Transmission Date: 20160525
  Serious: Yes (Death, Hospitalization)
  Sender: FDA-Public Use
  Company Number: PHEH2015US001035

PATIENT
  Age: 70 Year
  Sex: Female

DRUGS (25)
  1. COMPAZINE [Concomitant]
     Active Substance: PROCHLORPERAZINE MALEATE
     Dosage: UNK
     Route: 065
     Dates: start: 20141216, end: 20150422
  2. PERCOCET [Concomitant]
     Active Substance: ACETAMINOPHEN\OXYCODONE HYDROCHLORIDE
     Indication: PRODUCT USED FOR UNKNOWN INDICATION
     Dosage: UNK UNK, PRN
     Route: 048
     Dates: start: 20140610
  3. MUCINEX [Concomitant]
     Active Substance: GUAIFENESIN
     Indication: PRODUCT USED FOR UNKNOWN INDICATION
     Dosage: UNK UNK, PRN
     Route: 048
     Dates: start: 20140610
  4. URECHOLINE [Concomitant]
     Active Substance: BETHANECHOL CHLORIDE
     Dosage: UNK UKN, QD
     Route: 065
     Dates: start: 20141008
  5. ZOFRAN [Concomitant]
     Active Substance: ONDANSETRON HYDROCHLORIDE
     Indication: PRODUCT USED FOR UNKNOWN INDICATION
     Dosage: UNK UNK, PRN
     Route: 065
     Dates: start: 20140610
  6. PANTOPRAZOL [Concomitant]
     Active Substance: PANTOPRAZOLE SODIUM
     Indication: PRODUCT USED FOR UNKNOWN INDICATION
     Dosage: UNK UNK, QD
     Route: 048
     Dates: start: 20140610
  7. IMODIUM A-D [Concomitant]
     Active Substance: LOPERAMIDE HYDROCHLORIDE
     Indication: PRODUCT USED FOR UNKNOWN INDICATION
     Route: 048
     Dates: start: 20140610
  8. METOPROLOL. [Concomitant]
     Active Substance: METOPROLOL
     Indication: PRODUCT USED FOR UNKNOWN INDICATION
     Route: 065
     Dates: start: 20130101, end: 20141216
  9. ZYKADIA [Suspect]
     Active Substance: CERITINIB
     Indication: PROSTATE CANCER
     Dosage: 750 MG, QD
     Route: 048
     Dates: start: 20141216
  10. ZYRTEC [Concomitant]
     Active Substance: CETIRIZINE HYDROCHLORIDE
     Indication: PRODUCT USED FOR UNKNOWN INDICATION
     Dosage: UNK UNK, PRN
     Route: 065
     Dates: end: 20141216
  11. ZYKADIA [Suspect]
     Active Substance: CERITINIB
     Dosage: 750 MG, QD FOR 3 DAYS
     Route: 048
     Dates: start: 20150403
  12. LOMOTIL [Concomitant]
     Active Substance: ATROPINE SULFATE\DIPHENOXYLATE HYDROCHLORIDE
     Indication: PRODUCT USED FOR UNKNOWN INDICATION
     Route: 048
     Dates: start: 20140610
  13. XALKORI [Concomitant]
     Active Substance: CRIZOTINIB
     Indication: PRODUCT USED FOR UNKNOWN INDICATION
     Route: 065
     Dates: end: 20141216
  14. FERROUS GLUCONATE [Concomitant]
     Active Substance: FERROUS GLUCONATE
     Indication: PRODUCT USED FOR UNKNOWN INDICATION
     Dosage: UNK UNK, QD
     Route: 048
     Dates: start: 20140610
  15. ZYKADIA [Suspect]
     Active Substance: CERITINIB
     Dosage: 750 MG, 3 DAY ON,1 DAY OFF
     Route: 048
  16. FLORICAL [Concomitant]
     Active Substance: DIETARY SUPPLEMENT
     Dosage: UNK
     Route: 065
     Dates: start: 20140610
  17. FLUDROCORTISONE [Concomitant]
     Active Substance: FLUDROCORTISONE
     Indication: PRODUCT USED FOR UNKNOWN INDICATION
     Route: 065
     Dates: start: 20141216
  18. MIDODRINE [Concomitant]
     Active Substance: MIDODRINE
     Indication: PRODUCT USED FOR UNKNOWN INDICATION
     Dosage: UNK UNK, QD
     Route: 048
     Dates: start: 20141008
  19. POTASSIUM CHLORIDE. [Concomitant]
     Active Substance: POTASSIUM CHLORIDE
     Indication: PRODUCT USED FOR UNKNOWN INDICATION
     Route: 048
     Dates: start: 20140610
  20. BETHANCOL [Concomitant]
     Indication: PRODUCT USED FOR UNKNOWN INDICATION
     Route: 048
     Dates: start: 20140610
  21. COMPAZINE [Concomitant]
     Active Substance: PROCHLORPERAZINE MALEATE
     Indication: PRODUCT USED FOR UNKNOWN INDICATION
     Route: 065
     Dates: start: 20140610
  22. FLORICAL [Concomitant]
     Active Substance: DIETARY SUPPLEMENT
     Indication: PRODUCT USED FOR UNKNOWN INDICATION
     Route: 048
     Dates: start: 20140810
  23. MULTI VITAMIN [Concomitant]
     Active Substance: VITAMINS
     Indication: PRODUCT USED FOR UNKNOWN INDICATION
     Dosage: UNK, QD
     Route: 065
     Dates: end: 20141216
  24. APAP CODEINE [Concomitant]
     Indication: PRODUCT USED FOR UNKNOWN INDICATION
     Dosage: UNK UNK, PRN
     Route: 048
     Dates: start: 20140610
  25. URECHOLINE [Concomitant]
     Active Substance: BETHANECHOL CHLORIDE
     Indication: PRODUCT USED FOR UNKNOWN INDICATION
     Route: 065
     Dates: start: 20140610

REACTIONS (18)
  - Gastroenteritis viral [Recovered/Resolved]
  - Fatigue [Recovered/Resolved]
  - Vomiting [Unknown]
  - Pericardial effusion [Unknown]
  - Pleural effusion [Unknown]
  - Dehydration [Not Recovered/Not Resolved]
  - Urinary tract infection [Recovered/Resolved]
  - Neck pain [Unknown]
  - Decreased appetite [Not Recovered/Not Resolved]
  - Death [Fatal]
  - Myocardial infarction [Unknown]
  - Pneumonia [Unknown]
  - Nausea [Recovered/Resolved]
  - Diarrhoea [Recovering/Resolving]
  - Brain hypoxia [Unknown]
  - Chest pain [Unknown]
  - Asthenia [Recovered/Resolved]
  - Nausea [Not Recovered/Not Resolved]

NARRATIVE: CASE EVENT DATE: 201412
